FAERS Safety Report 19113623 (Version 2)
Quarter: 2021Q2

REPORT INFORMATION
  Report Type: Spontaneous
  Country: JP (occurrence: JP)
  Receive Date: 20210409
  Receipt Date: 20210419
  Transmission Date: 20210717
  Serious: Yes (Life-Threatening, Hospitalization)
  Sender: FDA-Public Use
  Company Number: JP-TEVA-2021-JP-1898169

PATIENT
  Age: 43 Year
  Sex: Female

DRUGS (14)
  1. NAFAMOSTAT MESILATE [Concomitant]
     Active Substance: NAFAMOSTAT MESYLATE
     Indication: PRODUCT USED FOR UNKNOWN INDICATION
     Route: 065
  2. ULINASTATIN [Concomitant]
     Active Substance: ULINASTATIN
     Indication: PRODUCT USED FOR UNKNOWN INDICATION
     Dosage: 30,000 UNITS
     Route: 065
  3. AMINOLEBAN [Concomitant]
     Active Substance: AMINO ACIDS, SOURCE UNSPECIFIED
     Indication: HEPATIC FAILURE
     Route: 065
  4. HYDROCORTISONE. [Suspect]
     Active Substance: HYDROCORTISONE
     Indication: HYPOTENSION
     Dosage: 100 MILLIGRAM DAILY;
     Route: 065
  5. MACITENTAN [Concomitant]
     Active Substance: MACITENTAN
     Indication: PULMONARY HYPERTENSION
     Route: 065
  6. EPOPROSTENOL. [Suspect]
     Active Substance: EPOPROSTENOL
     Indication: PULMONARY HYPERTENSION
     Dosage: FIRST ADMINISTERED 0.199 NG/KG/MIN AND INCREASED BY 0.15 TO 0.5 NG/KG/MIN EVERY 5 TO 10 HOURS
     Route: 065
  7. EPOPROSTENOL. [Suspect]
     Active Substance: EPOPROSTENOL
     Dosage: 1.34 NG/KG/MIN ON DAY 3 OF HOSPITALISATION
     Route: 065
  8. EPOPROSTENOL. [Suspect]
     Active Substance: EPOPROSTENOL
     Dosage: 7.128 NG/KG/MIN ON DAY 12 OF HOSPITALISATION
     Route: 065
  9. EPOPROSTENOL. [Suspect]
     Active Substance: EPOPROSTENOL
     Dosage: 6.173NG/KG/MIN ON DAY 11 OF HOSPITALISATION
     Route: 065
  10. DOPAMINE [Suspect]
     Active Substance: DOPAMINE HYDROCHLORIDE
     Indication: HYPOTENSION
     Route: 065
  11. AMLODIPINE [Suspect]
     Active Substance: AMLODIPINE BESYLATE
     Indication: PULMONARY HYPERTENSION
     Dosage: 2.5 MILLIGRAM DAILY;
     Route: 048
  12. ADRENALINE [Suspect]
     Active Substance: EPINEPHRINE
     Indication: HYPOTENSION
     Route: 065
  13. NORADRENALINE [Suspect]
     Active Substance: NOREPINEPHRINE
     Indication: HYPOTENSION
     Route: 065
  14. URSODEOXYCHOLIC ACID [Concomitant]
     Active Substance: URSODIOL
     Indication: HEPATIC FAILURE
     Route: 065

REACTIONS (4)
  - Drug ineffective [Unknown]
  - Headache [Unknown]
  - Diarrhoea [Unknown]
  - Hepatic encephalopathy [Unknown]
